FAERS Safety Report 8777092 (Version 1)
Quarter: 2012Q4

REPORT INFORMATION
  Report Type: 
  Country: AR (occurrence: AR)
  Receive Date: 20120911
  Receipt Date: 20120911
  Transmission Date: 20130627
  Serious: Yes (Other)
  Sender: FDA-Public Use
  Company Number: AR-BRISTOL-MYERS SQUIBB COMPANY-16923286

PATIENT
  Age: 1 Day

DRUGS (1)
  1. REYATAZ [Suspect]

REACTIONS (1)
  - Deafness [Unknown]
